FAERS Safety Report 23921862 (Version 1)
Quarter: 2024Q2

REPORT INFORMATION
  Report Type: Spontaneous
  Country: US (occurrence: US)
  Receive Date: 20240530
  Receipt Date: 20240530
  Transmission Date: 20240716
  Serious: No
  Sender: FDA-Public Use
  Company Number: US-BEIGENE-BGN-2024-007598

PATIENT

DRUGS (1)
  1. BRUKINSA [Suspect]
     Active Substance: ZANUBRUTINIB
     Indication: Chronic lymphocytic leukaemia

REACTIONS (3)
  - Skin exfoliation [Not Recovered/Not Resolved]
  - Skin wound [Not Recovered/Not Resolved]
  - Rash [Not Recovered/Not Resolved]
